FAERS Safety Report 7337310-4 (Version None)
Quarter: 2011Q1

REPORT INFORMATION
  Report Type: 
  Country: None (occurrence: None)
  Receive Date: 20110308
  Receipt Date: 20110303
  Transmission Date: 20110831
  Serious: Yes (Death)
  Sender: FDA-Public Use
  Company Number: ES-SANOFI-AVENTIS-2011SA013305

PATIENT
  Age: 81 Year
  Sex: Male

DRUGS (5)
  1. CLOPIDOGREL [Interacting]
     Indication: PROPHYLAXIS
     Route: 048
     Dates: start: 20101208, end: 20101215
  2. AMIODARONE [Concomitant]
     Indication: TACHYCARDIA
     Dates: start: 20101209
  3. CLEXANE SYRINGES [Suspect]
     Route: 058
     Dates: start: 20101208, end: 20101215
  4. SALICYLIC ACID [Interacting]
     Indication: PROPHYLAXIS
     Route: 048
     Dates: start: 20101203, end: 20101215
  5. ATORVASTATIN [Concomitant]
     Indication: DYSLIPIDAEMIA
     Route: 048
     Dates: start: 20101208

REACTIONS (4)
  - MUSCLE HAEMORRHAGE [None]
  - SHOCK HAEMORRHAGIC [None]
  - THROMBOCYTOPENIA [None]
  - MULTI-ORGAN FAILURE [None]
